FAERS Safety Report 10088103 (Version 2)
Quarter: 2014Q2

REPORT INFORMATION
  Report Type: Spontaneous
  Country: TR (occurrence: TR)
  Receive Date: 20140421
  Receipt Date: 20140430
  Transmission Date: 20141212
  Serious: Yes (Death, Life-Threatening, Hospitalization)
  Sender: FDA-Public Use
  Company Number: TR-RANBAXY-2014RR-80334

PATIENT
  Age: 67 Year
  Sex: Male

DRUGS (5)
  1. SERTRALINE [Suspect]
     Indication: DEPRESSION
     Dosage: 50 MG, DAILY
     Route: 065
  2. SERTRALINE [Interacting]
     Indication: DEPRESSION
     Dosage: 100 MG, DAILY
     Route: 065
  3. MIRTAZAPINE [Interacting]
     Indication: DEPRESSION
     Dosage: 15 MG, DAILY
     Route: 065
  4. VENLAFAXINE [Concomitant]
     Indication: DEPRESSION
     Dosage: UNK
     Route: 065
  5. ALPRAZOLAM [Concomitant]
     Indication: DEPRESSION
     Dosage: UNK
     Route: 065

REACTIONS (4)
  - Ventricular tachycardia [Fatal]
  - Cardiac arrest [Fatal]
  - Respiratory arrest [Unknown]
  - Drug interaction [Fatal]
